FAERS Safety Report 20906334 (Version 1)
Quarter: 2022Q2

REPORT INFORMATION
  Report Type: Spontaneous
  Country: FR (occurrence: FR)
  Receive Date: 20220602
  Receipt Date: 20220602
  Transmission Date: 20220720
  Serious: Yes (Hospitalization, Congenital Anomaly, Other)
  Sender: FDA-Public Use
  Company Number: FR-PFIZER INC-2017361695

PATIENT
  Sex: Female
  Weight: 2.015 kg

DRUGS (5)
  1. ZOLOFT [Suspect]
     Active Substance: SERTRALINE HYDROCHLORIDE
     Dosage: 100 MG, DAILY
     Route: 064
     Dates: start: 20170202
  2. ZOLOFT [Suspect]
     Active Substance: SERTRALINE HYDROCHLORIDE
     Dosage: 150 MG, DAILY
     Route: 064
     Dates: start: 201706, end: 20170728
  3. VENLAFAXINE HYDROCHLORIDE [Suspect]
     Active Substance: VENLAFAXINE HYDROCHLORIDE
     Dosage: 75 MG, DAILY
     Route: 064
     Dates: start: 20170102
  4. OXAZEPAM [Suspect]
     Active Substance: OXAZEPAM
     Indication: Sleep disorder
     Dosage: OCCASIONALLY
     Route: 064
  5. CHLORPROMAZINE HYDROCHLORIDE [Suspect]
     Active Substance: CHLORPROMAZINE HYDROCHLORIDE
     Dosage: 5 DROP, DAILY
     Route: 064
     Dates: start: 20170513, end: 20170514

REACTIONS (6)
  - Maternal exposure during pregnancy [Not Recovered/Not Resolved]
  - Respiratory distress [Recovered/Resolved]
  - Hypotonia [Recovered/Resolved]
  - Hypersomnia [Recovered/Resolved]
  - Trismus [Not Recovered/Not Resolved]
  - Dystonia [Not Recovered/Not Resolved]

NARRATIVE: CASE EVENT DATE: 20170728
